FAERS Safety Report 21316028 (Version 20)
Quarter: 2024Q1

REPORT INFORMATION
  Report Type: Spontaneous
  Country: CA (occurrence: CA)
  Receive Date: 20220910
  Receipt Date: 20240320
  Transmission Date: 20240410
  Serious: Yes (Hospitalization, Other)
  Sender: FDA-Public Use
  Company Number: CA-CELLTRION INC.-2022CA010074

PATIENT

DRUGS (19)
  1. INFLECTRA [Suspect]
     Active Substance: INFLIXIMAB-DYYB
     Indication: Crohn^s disease
     Dosage: 1000 MG, EVERY 6 WEEKS
     Route: 042
     Dates: start: 20220603
  2. INFLECTRA [Suspect]
     Active Substance: INFLIXIMAB-DYYB
     Dosage: 1000 MG, EVERY 6 WEEKS
     Route: 042
     Dates: start: 20220603, end: 2022
  3. INFLECTRA [Suspect]
     Active Substance: INFLIXIMAB-DYYB
     Dosage: 1000 MG, EVERY 6 WEEKS
     Route: 042
     Dates: start: 20220715
  4. INFLECTRA [Suspect]
     Active Substance: INFLIXIMAB-DYYB
     Dosage: 1000 MG, EVERY 6 WEEKS
     Route: 042
     Dates: start: 20220826
  5. INFLECTRA [Suspect]
     Active Substance: INFLIXIMAB-DYYB
     Dosage: 1000 MG, EVERY 6 WEEKS
     Route: 042
  6. INFLECTRA [Suspect]
     Active Substance: INFLIXIMAB-DYYB
     Dosage: 1000 MG, EVERY 6 WEEKS
     Route: 042
  7. INFLECTRA [Suspect]
     Active Substance: INFLIXIMAB-DYYB
     Dosage: 8 MG/KG, EVERY 6 WEEKS
     Route: 042
     Dates: start: 2022
  8. INFLECTRA [Suspect]
     Active Substance: INFLIXIMAB-DYYB
     Dosage: 1000 MG, EVERY 6 WEEKS
     Route: 042
     Dates: start: 20230324
  9. INFLECTRA [Suspect]
     Active Substance: INFLIXIMAB-DYYB
     Dosage: 920 MG (8 MG/KG), EVERY 6 WEEKS
     Route: 042
     Dates: start: 20230501
  10. INFLECTRA [Suspect]
     Active Substance: INFLIXIMAB-DYYB
     Dosage: 8 MG/KG, EVERY 6 WEEKS
     Route: 042
     Dates: start: 20230724
  11. INFLECTRA [Suspect]
     Active Substance: INFLIXIMAB-DYYB
     Dosage: 8 MG/KG, EVERY 6 WEEKS
     Route: 042
     Dates: start: 2023
  12. INFLECTRA [Suspect]
     Active Substance: INFLIXIMAB-DYYB
     Dosage: 8 MG/KG, EVERY 6 WEEKS
     Route: 042
     Dates: start: 20231016
  13. INFLECTRA [Suspect]
     Active Substance: INFLIXIMAB-DYYB
     Dosage: 960 MG, AFTER 6 WEEKS (SUPPOSED TO RECEIVE 768 MG ( 8 MG/KG)
     Route: 042
     Dates: start: 20231127
  14. INFLECTRA [Suspect]
     Active Substance: INFLIXIMAB-DYYB
     Dosage: 8 MG/KG, EVERY 6 WEEKS
     Route: 042
     Dates: start: 20231206, end: 20231206
  15. PREDNISONE [Concomitant]
     Active Substance: PREDNISONE
     Dosage: 40 MG
  16. PREDNISONE [Concomitant]
     Active Substance: PREDNISONE
     Dosage: 5 MG, TAPERING EVERY WEEK
  17. PREDNISONE [Concomitant]
     Active Substance: PREDNISONE
     Dosage: 1 DF (INCREASED PATIENT^S PREDNISONE)
  18. PREDNISONE [Concomitant]
     Active Substance: PREDNISONE
     Dosage: 60 MG
  19. PREDNISONE [Concomitant]
     Active Substance: PREDNISONE
     Dosage: 1 DF

REACTIONS (12)
  - Crohn^s disease [Recovering/Resolving]
  - Haematochezia [Recovered/Resolved]
  - Therapeutic response shortened [Not Recovered/Not Resolved]
  - Drug ineffective [Unknown]
  - Off label use [Unknown]
  - Intentional product use issue [Unknown]
  - Off label use [Unknown]
  - Incorrect dose administered [Unknown]
  - Drug level above therapeutic [Unknown]
  - Malaise [Not Recovered/Not Resolved]
  - Vomiting [Not Recovered/Not Resolved]
  - Nausea [Not Recovered/Not Resolved]

NARRATIVE: CASE EVENT DATE: 20220801
